FAERS Safety Report 8574865 (Version 7)
Quarter: 2013Q4

REPORT INFORMATION
  Report Type: Spontaneous
  Country: US (occurrence: US)
  Receive Date: 20120523
  Receipt Date: 20131111
  Transmission Date: 20140711
  Serious: Yes (Hospitalization, Other)
  Sender: FDA-Public Use
  Company Number: US-BIOGENIDEC-2012BI016940

PATIENT
  Age: 62 Year
  Sex: Female

DRUGS (3)
  1. AVONEX [Suspect]
     Indication: MULTIPLE SCLEROSIS
     Route: 030
     Dates: start: 20101026
  2. AVONEX [Suspect]
     Indication: MULTIPLE SCLEROSIS
     Route: 030
     Dates: start: 20101108
  3. AVONEX [Suspect]
     Indication: MULTIPLE SCLEROSIS
     Route: 030
     Dates: start: 20120727

REACTIONS (39)
  - Traumatic intracranial haemorrhage [Recovered/Resolved]
  - Fall [Recovered/Resolved]
  - Head injury [Recovered/Resolved]
  - Intervertebral disc disorder [Unknown]
  - Abasia [Recovered/Resolved]
  - Musculoskeletal disorder [Unknown]
  - Headache [Recovered/Resolved]
  - Convulsion [Recovered/Resolved]
  - Multiple sclerosis relapse [Recovered/Resolved]
  - Muscle atrophy [Not Recovered/Not Resolved]
  - Central nervous system lesion [Unknown]
  - Hearing impaired [Not Recovered/Not Resolved]
  - Deafness unilateral [Not Recovered/Not Resolved]
  - Injury associated with device [Recovered/Resolved]
  - Memory impairment [Not Recovered/Not Resolved]
  - Rib fracture [Not Recovered/Not Resolved]
  - Flank pain [Not Recovered/Not Resolved]
  - Burning sensation [Not Recovered/Not Resolved]
  - Thermal burn [Not Recovered/Not Resolved]
  - Neuropathy peripheral [Not Recovered/Not Resolved]
  - Cognitive disorder [Not Recovered/Not Resolved]
  - Mobility decreased [Unknown]
  - Diplopia [Recovered/Resolved]
  - Reading disorder [Recovered/Resolved]
  - Eye disorder [Unknown]
  - Somnolence [Recovered/Resolved]
  - Hypersomnia [Recovered/Resolved]
  - Deafness [Recovered/Resolved]
  - Hemiparesis [Not Recovered/Not Resolved]
  - Visual impairment [Recovered/Resolved]
  - Coordination abnormal [Not Recovered/Not Resolved]
  - Postictal state [Recovered/Resolved]
  - Hypoaesthesia [Not Recovered/Not Resolved]
  - Contusion [Recovered/Resolved]
  - Gait disturbance [Not Recovered/Not Resolved]
  - Macular degeneration [Not Recovered/Not Resolved]
  - Back injury [Not Recovered/Not Resolved]
  - Fatigue [Recovered/Resolved]
  - Confusional state [Recovered/Resolved]
